FAERS Safety Report 12743758 (Version 2)
Quarter: 2016Q3

REPORT INFORMATION
  Report Type: Report from Study
  Country: BR (occurrence: BR)
  Receive Date: 20160914
  Receipt Date: 20160916
  Transmission Date: 20161109
  Serious: Yes (Other)
  Sender: FDA-Public Use
  Company Number: BR-ABBVIE-16P-020-1706943-00

PATIENT
  Age: 37 Year
  Sex: Female
  Weight: 60 kg

DRUGS (4)
  1. HUMIRA [Suspect]
     Active Substance: ADALIMUMAB
     Indication: RHEUMATOID ARTHRITIS
     Route: 058
     Dates: start: 20160801
  2. CALCIUM [Concomitant]
     Active Substance: CALCIUM
     Indication: MINERAL SUPPLEMENTATION
     Route: 048
     Dates: start: 201512
  3. OMEPRAZOLE. [Concomitant]
     Active Substance: OMEPRAZOLE
     Indication: GASTRIC DISORDER
     Route: 048
     Dates: start: 201512
  4. DORFLEX [Concomitant]
     Active Substance: CAFFEINE\DIPYRONE\ORPHENADRINE
     Indication: PAIN
     Route: 048

REACTIONS (12)
  - Pruritus [Unknown]
  - Erythema [Not Recovered/Not Resolved]
  - Drug hypersensitivity [Unknown]
  - Drug hypersensitivity [Not Recovered/Not Resolved]
  - Measles [Unknown]
  - Constipation [Unknown]
  - Nervousness [Unknown]
  - Tinea infection [Unknown]
  - Dermatitis allergic [Unknown]
  - Tooth disorder [Unknown]
  - Constipation [Unknown]
  - Pain [Unknown]

NARRATIVE: CASE EVENT DATE: 2016
